FAERS Safety Report 4815187-6 (Version None)
Quarter: 2005Q4

REPORT INFORMATION
  Report Type: 
  Country: None (occurrence: None)
  Receive Date: 20051028
  Receipt Date: 20050617
  Transmission Date: 20060501
  Serious: Yes (Hospitalization, Other)
  Sender: FDA-Public Use
  Company Number: FR-MERCK-0506FRA00078

PATIENT
  Age: 83 Year
  Sex: Female

DRUGS (6)
  1. COZAAR [Suspect]
     Route: 048
     Dates: end: 20050525
  2. VERAPAMIL [Suspect]
     Indication: ATRIAL FIBRILLATION
     Route: 048
     Dates: end: 20050525
  3. PROPAFENONE HYDROCHLORIDE [Suspect]
     Indication: ATRIAL FIBRILLATION
     Route: 048
     Dates: end: 20050525
  4. MEPROBAMATE [Concomitant]
     Route: 048
     Dates: start: 20041201, end: 20050525
  5. POTASSIUM (UNSPECIFIED) [Concomitant]
     Route: 048
     Dates: end: 20050525
  6. LEVOTHYROXINE SODIUM [Concomitant]
     Indication: HYPOTHYROIDISM
     Route: 048
     Dates: end: 20050525

REACTIONS (4)
  - BRADYCARDIA [None]
  - CONVULSION [None]
  - HYPOTENSION [None]
  - SOMNOLENCE [None]
